FAERS Safety Report 9438047 (Version 2)
Quarter: 2014Q1

REPORT INFORMATION
  Report Type: Spontaneous
  Country: US (occurrence: US)
  Receive Date: 20130802
  Receipt Date: 20140106
  Transmission Date: 20141002
  Serious: Yes (Hospitalization)
  Sender: FDA-Public Use
  Company Number: US-B.I. PHARMACEUTICALS,INC./RIDGEFIELD-2013-BI-23019BP

PATIENT
  Sex: Female
  Weight: 72.57 kg

DRUGS (9)
  1. PRADAXA [Suspect]
     Dosage: 150 MG
     Route: 048
     Dates: start: 20110104, end: 20120104
  2. LEVOTHYROXINE [Concomitant]
     Dosage: 62.5 MCG
     Route: 048
  3. PREDNISONE [Concomitant]
     Dosage: 4 MG
     Route: 048
  4. PRAVASTATINE [Concomitant]
     Dosage: 40 MG
     Route: 048
  5. ALLOPURINOL [Concomitant]
     Dosage: 100 MG
     Route: 048
  6. TEMAZEPAM [Concomitant]
     Indication: SLEEP DISORDER
     Dosage: 15 MG
     Route: 048
  7. MULTIVITAMINS WITH MINERALS [Concomitant]
     Route: 048
  8. CARVEDILOL [Concomitant]
     Dosage: 50 MG
     Route: 048
  9. TORSEMIDE [Concomitant]
     Dosage: 40 MG
     Route: 048

REACTIONS (3)
  - Gastrointestinal haemorrhage [Unknown]
  - Anaemia [Unknown]
  - Thrombocytopenic purpura [Unknown]
